FAERS Safety Report 16038104 (Version 1)
Quarter: 2019Q1

REPORT INFORMATION
  Report Type: Spontaneous
  Country: US (occurrence: US)
  Receive Date: 20190305
  Receipt Date: 20190305
  Transmission Date: 20190418
  Serious: Yes (Other)
  Sender: FDA-Public Use
  Company Number: US-PFIZER INC-2019088094

PATIENT
  Age: 59 Year
  Sex: Male
  Weight: 93.89 kg

DRUGS (1)
  1. SUTENT [Suspect]
     Active Substance: SUNITINIB MALATE
     Indication: RENAL CANCER
     Dosage: 50 MG, CYCLIC (EVERY DAY, 14 DAYS ON AND 7 DAYS OFF)
     Route: 048
     Dates: start: 20190207

REACTIONS (6)
  - Vomiting [Unknown]
  - Cardiac disorder [Unknown]
  - Asthenia [Unknown]
  - Paraesthesia [Unknown]
  - Diarrhoea [Unknown]
  - Hypoaesthesia [Unknown]
